APPROVED DRUG PRODUCT: PRAMIPEXOLE DIHYDROCHLORIDE
Active Ingredient: PRAMIPEXOLE DIHYDROCHLORIDE
Strength: 4.5MG
Dosage Form/Route: TABLET, EXTENDED RELEASE;ORAL
Application: A202353 | Product #005 | TE Code: AB
Applicant: CHARTWELL RX SCIENCES LLC
Approved: Dec 4, 2014 | RLD: No | RS: No | Type: RX